FAERS Safety Report 6759870-4 (Version None)
Quarter: 2010Q2

REPORT INFORMATION
  Report Type: 
  Country: None (occurrence: None)
  Receive Date: 20100604
  Receipt Date: 20100524
  Transmission Date: 20101027
  Serious: Yes (Death, Other)
  Sender: FDA-Public Use
  Company Number: 7005967

PATIENT
  Age: 43 Year
  Sex: Female

DRUGS (2)
  1. NOVANTRONE [Suspect]
     Indication: MULTIPLE SCLEROSIS
     Dates: start: 20060101
  2. STEROIDS (CORTICOSTEROIDS) [Concomitant]

REACTIONS (3)
  - CARDIAC DISORDER [None]
  - INFECTION [None]
  - RESPIRATORY FAILURE [None]
